FAERS Safety Report 7346650-4 (Version None)
Quarter: 2011Q1

REPORT INFORMATION
  Report Type: 
  Country: None (occurrence: None)
  Receive Date: 20110311
  Receipt Date: 20110223
  Transmission Date: 20110831
  Serious: Yes (Hospitalization, Other)
  Sender: FDA-Public Use
  Company Number: JP-PFIZER INC-2010158695

PATIENT
  Age: 49 Year
  Sex: Female

DRUGS (2)
  1. RHEUMATREX [Concomitant]
  2. AZULFIDINE [Suspect]

REACTIONS (1)
  - LUPUS NEPHRITIS [None]
